FAERS Safety Report 12268385 (Version 1)
Quarter: 2016Q2

REPORT INFORMATION
  Report Type: Spontaneous
  Country: BR (occurrence: BR)
  Receive Date: 20160414
  Receipt Date: 20160414
  Transmission Date: 20160815
  Serious: Yes (Death)
  Sender: FDA-Public Use
  Company Number: BR-PFIZER INC-2015452201

PATIENT
  Age: 58 Year
  Sex: Female
  Weight: 38 kg

DRUGS (2)
  1. OMEPRAZOLE. [Concomitant]
     Active Substance: OMEPRAZOLE
     Dosage: 20 MG, UNK
  2. SUTENT [Suspect]
     Active Substance: SUNITINIB MALATE
     Indication: PANCREATIC NEUROENDOCRINE TUMOUR
     Dosage: 50 MG, CONTINUOUS
     Route: 048
     Dates: start: 20151208

REACTIONS (11)
  - Migraine [Unknown]
  - Pancreatic neuroendocrine tumour [Fatal]
  - Multiple organ dysfunction syndrome [Fatal]
  - Decreased appetite [Unknown]
  - Malaise [Unknown]
  - Weight decreased [Unknown]
  - Tongue disorder [Not Recovered/Not Resolved]
  - Vision blurred [Unknown]
  - Asthenia [Not Recovered/Not Resolved]
  - Disease progression [Fatal]
  - Dry mouth [Unknown]

NARRATIVE: CASE EVENT DATE: 201512
